FAERS Safety Report 18916231 (Version 1)
Quarter: 2021Q1

REPORT INFORMATION
  Report Type: Spontaneous
  Country: IN (occurrence: IN)
  Receive Date: 20210218
  Receipt Date: 20210218
  Transmission Date: 20210420
  Serious: No
  Sender: FDA-Public Use
  Company Number: IN-ALKEM LABORATORIES LIMITED-IN-ALKEM-2020-03884

PATIENT
  Age: 30 Year
  Sex: Male

DRUGS (2)
  1. MOXIFLOXACIN. [Concomitant]
     Active Substance: MOXIFLOXACIN
     Indication: SKIN ULCER
     Dosage: 400 MILLIGRAM, QD
     Route: 065
  2. LINEZOLID. [Suspect]
     Active Substance: LINEZOLID
     Indication: SKIN ULCER
     Dosage: 600 MILLIGRAM, BID
     Route: 065

REACTIONS (1)
  - Tooth discolouration [Unknown]
